FAERS Safety Report 7523606-X (Version None)
Quarter: 2011Q2

REPORT INFORMATION
  Report Type: 
  Country: None (occurrence: None)
  Receive Date: 20110603
  Receipt Date: 20110526
  Transmission Date: 20111010
  Serious: Yes (Death, Hospitalization)
  Sender: FDA-Public Use
  Company Number: MX-SANOFI-AVENTIS-2011SA033412

PATIENT
  Age: 63 Year
  Sex: Female

DRUGS (5)
  1. INSULIN GLARGINE [Suspect]
     Indication: TYPE 2 DIABETES MELLITUS
     Route: 058
     Dates: start: 20080101, end: 20110214
  2. DIURETICS [Concomitant]
  3. LACTULOSE [Concomitant]
  4. LEGALON [Concomitant]
  5. METFORMIN HCL [Concomitant]

REACTIONS (3)
  - HEPATIC CIRRHOSIS [None]
  - CARDIAC ARREST [None]
  - ADVERSE REACTION [None]
